FAERS Safety Report 7786140-8 (Version None)
Quarter: 2011Q3

REPORT INFORMATION
  Report Type: 
  Country: None (occurrence: None)
  Receive Date: 20110929
  Receipt Date: 20110922
  Transmission Date: 20111222
  Serious: Yes (Hospitalization, Other)
  Sender: FDA-Public Use
  Company Number: JP-PFIZER INC-2011206168

PATIENT
  Sex: Female

DRUGS (5)
  1. ONE-ALPHA [Concomitant]
     Dosage: 0.5 UG, 1X/DAY
     Route: 048
     Dates: start: 20110502
  2. TOCOPHERYL NICOTINATE [Concomitant]
     Dosage: 200 MG, 1X/DAY
     Route: 048
     Dates: start: 20101023
  3. LYRICA [Suspect]
     Indication: NEURALGIA
     Dosage: 25 MG, 2X/DAY
     Route: 048
     Dates: start: 20110809, end: 20110901
  4. ELCATONIN [Concomitant]
     Dosage: 20 IU, WEEKLY
     Route: 058
     Dates: start: 20110502
  5. DIAZEPAM [Suspect]
     Dosage: 5 MG, 1X/DAY
     Route: 048
     Dates: start: 20101023

REACTIONS (1)
  - LOSS OF CONSCIOUSNESS [None]
